FAERS Safety Report 5546936-X (Version None)
Quarter: 2007Q4

REPORT INFORMATION
  Report Type: 
  Country: None (occurrence: None)
  Receive Date: 20071211
  Receipt Date: 20070216
  Transmission Date: 20080405
  Serious: No
  Sender: FDA-Public Use
  Company Number: US-AMGEN-KDL209942

PATIENT
  Sex: Female

DRUGS (9)
  1. ENBREL [Suspect]
     Indication: RHEUMATOID ARTHRITIS
     Route: 058
     Dates: start: 20061201
  2. NORVASC [Concomitant]
     Dates: start: 20061101
  3. ESTRADIOL [Concomitant]
     Dates: start: 20060901
  4. PROMETRIUM [Concomitant]
     Dates: start: 20060901
  5. SKELAXIN [Concomitant]
     Dates: start: 20060101
  6. DARVOCET [Concomitant]
     Dates: start: 20060101
  7. CENTRUM SILVER [Concomitant]
     Dates: start: 20060101
  8. MOTRIN [Concomitant]
     Dates: start: 20060101
  9. LOTENSIN [Concomitant]
     Dates: start: 20060101

REACTIONS (3)
  - INJECTION SITE BRUISING [None]
  - INJECTION SITE PRURITUS [None]
  - INJECTION SITE RASH [None]
